FAERS Safety Report 6700416-4 (Version None)
Quarter: 2010Q2

REPORT INFORMATION
  Report Type: 
  Country: None (occurrence: None)
  Receive Date: 20100428
  Receipt Date: 20100420
  Transmission Date: 20101027
  Serious: Yes (Hospitalization)
  Sender: FDA-Public Use
  Company Number: BR-ROCHE-698958

PATIENT
  Sex: Female
  Weight: 73 kg

DRUGS (4)
  1. BONIVA [Suspect]
     Indication: DRUG USE FOR UNKNOWN INDICATION
     Route: 048
     Dates: end: 20090701
  2. VIVACOR [Concomitant]
     Dates: start: 20050101
  3. ACTOS [Concomitant]
     Dates: start: 20060101
  4. SERETIDE [Concomitant]
     Indication: ASTHMA
     Dosage: TWO TIMES WHEN CRISIS AND ONCE WHEN NO CRISIS
     Dates: start: 20060101

REACTIONS (1)
  - OSTEOARTHRITIS [None]
